FAERS Safety Report 4692223-1 (Version None)
Quarter: 2005Q2

REPORT INFORMATION
  Report Type: 
  Country: None (occurrence: None)
  Receive Date: 20050614
  Receipt Date: 20050613
  Transmission Date: 20051028
  Serious: Yes (Life-Threatening, Hospitalization)
  Sender: FDA-Public Use
  Company Number: 213030

PATIENT
  Age: 62 Year
  Sex: Male
  Weight: 65.4 kg

DRUGS (8)
  1. AVASTIN [Suspect]
     Indication: COLORECTAL CANCER METASTATIC
     Dosage: 465 MG, INTRAVENOUS
     Route: 042
     Dates: start: 20041207
  2. TRAMADOL HCL [Concomitant]
  3. ACETAMINOPHEN [Concomitant]
  4. GENTAMICIN [Concomitant]
  5. CEFRADINE (CEPHRADINE) [Concomitant]
  6. FUROSEMIDE [Concomitant]
  7. LACTULOSE [Concomitant]
  8. ZOPICLONE (ZOPICLONE) [Concomitant]

REACTIONS (6)
  - ACUTE CORONARY SYNDROME [None]
  - MALAISE [None]
  - MELAENA [None]
  - NOSOCOMIAL INFECTION [None]
  - PNEUMONIA [None]
  - RENAL IMPAIRMENT [None]
